FAERS Safety Report 14497552 (Version 1)
Quarter: 2018Q1

REPORT INFORMATION
  Report Type: Spontaneous
  Country: DE (occurrence: DE)
  Receive Date: 20180207
  Receipt Date: 20180207
  Transmission Date: 20180509
  Serious: Yes (Other)
  Sender: FDA-Public Use
  Company Number: DE-TEVA-2018-DE-852324

PATIENT
  Age: 80 Year
  Sex: Male

DRUGS (1)
  1. SPIRONOLACTON-RATIOPHARM 50 MG TABLETTEN [Suspect]
     Active Substance: SPIRONOLACTONE
     Route: 048

REACTIONS (4)
  - Depression [Unknown]
  - Rash [Unknown]
  - Suicidal ideation [Unknown]
  - Language disorder [Unknown]

NARRATIVE: CASE EVENT DATE: 20180122
